FAERS Safety Report 7970321-4 (Version None)
Quarter: 2011Q4

REPORT INFORMATION
  Report Type: 
  Country: None (occurrence: None)
  Receive Date: 20111122
  Receipt Date: 20110707
  Transmission Date: 20120403
  Serious: No
  Sender: FDA-Public Use
  Company Number: PHHY2011US57109

PATIENT
  Age: 56 Year
  Sex: Female
  Weight: 69 kg

DRUGS (5)
  1. VITAMIN D [Concomitant]
  2. OXYBUTYNIN [Concomitant]
  3. BACLOFEN [Concomitant]
  4. GILENYA [Suspect]
     Indication: MULTIPLE SCLEROSIS
     Dosage: 0.5 MG, QD, ORAL
     Route: 048
     Dates: start: 20110209
  5. HYDROCHLOROTHIAZIDE [Concomitant]

REACTIONS (7)
  - PAIN IN EXTREMITY [None]
  - MUSCLE TIGHTNESS [None]
  - LOWER EXTREMITY MASS [None]
  - MUSCULAR WEAKNESS [None]
  - INCREASED APPETITE [None]
  - PARAESTHESIA [None]
  - HEADACHE [None]
